FAERS Safety Report 9778636 (Version 2)
Quarter: 2014Q1

REPORT INFORMATION
  Report Type: Spontaneous
  Country: GB (occurrence: GB)
  Receive Date: 20131223
  Receipt Date: 20140106
  Transmission Date: 20141002
  Serious: Yes (Other)
  Sender: FDA-Public Use
  Company Number: GB-DRREDDYS-GER/UKI/13/0036541

PATIENT
  Age: 34 Year
  Sex: Male

DRUGS (3)
  1. QUETIAPINE [Suspect]
     Indication: PRODUCT USED FOR UNKNOWN INDICATION
  2. CLOZARIL [Suspect]
     Indication: SCHIZOPHRENIA
     Route: 048
     Dates: start: 20131008, end: 20131212
  3. METFORMIN [Concomitant]
     Indication: DIABETES MELLITUS

REACTIONS (7)
  - Blood pressure increased [Unknown]
  - Drug intolerance [Unknown]
  - Heart rate increased [Unknown]
  - Troponin increased [Unknown]
  - Haematuria [Unknown]
  - Proteinuria [Unknown]
  - Renal impairment [Unknown]
